FAERS Safety Report 5855868-9 (Version None)
Quarter: 2008Q3

REPORT INFORMATION
  Report Type: 
  Country: None (occurrence: None)
  Receive Date: 20080825
  Receipt Date: 20080619
  Transmission Date: 20090109
  Serious: No
  Sender: FDA-Public Use
  Company Number: A0733913A

PATIENT
  Age: 30 Year
  Sex: Male

DRUGS (3)
  1. MALARONE [Suspect]
     Indication: MALARIA
     Dosage: 2TAB UNKNOWN
     Route: 048
     Dates: start: 20080603, end: 20080616
  2. TYPHOID VACCINE [Concomitant]
  3. CIPROFLOXACIN [Concomitant]

REACTIONS (1)
  - OVERDOSE [None]
